FAERS Safety Report 9068963 (Version 1)
Quarter: 2013Q1

REPORT INFORMATION
  Report Type: Report from Study
  Country: DE (occurrence: DE)
  Receive Date: 20130215
  Receipt Date: 20130215
  Transmission Date: 20140127
  Serious: Yes (Death, Hospitalization, Other)
  Sender: FDA-Public Use
  Company Number: DE-ASTELLAS-2013US001679

PATIENT
  Sex: Male

DRUGS (4)
  1. ERLOTINIB TABLET [Suspect]
     Indication: NON-SMALL CELL LUNG CANCER
     Dosage: 150 MG, UID/QD
     Route: 048
     Dates: start: 200305, end: 200501
  2. ERLOTINIB TABLET [Suspect]
     Dosage: UNK
     Route: 048
     Dates: start: 200503, end: 200507
  3. AVASTIN                            /01555201/ [Suspect]
     Indication: NON-SMALL CELL LUNG CANCER
     Dosage: UNK
     Route: 065
     Dates: start: 200503, end: 200507
  4. PEMETREXED                         /01493902/ [Concomitant]
     Indication: NON-SMALL CELL LUNG CANCER
     Dosage: UNK
     Route: 065
     Dates: start: 200503, end: 200507

REACTIONS (6)
  - Pulmonary embolism [Fatal]
  - Malignant neoplasm progression [Unknown]
  - General physical health deterioration [Recovering/Resolving]
  - Rash [Unknown]
  - Decreased appetite [Unknown]
  - Fatigue [Unknown]
